FAERS Safety Report 24371276 (Version 1)
Quarter: 2024Q3

REPORT INFORMATION
  Report Type: Spontaneous
  Country: TH (occurrence: TH)
  Receive Date: 20240927
  Receipt Date: 20240927
  Transmission Date: 20241017
  Serious: Yes (Other)
  Sender: BAYER
  Company Number: TH-BAYER-2024A135078

PATIENT
  Sex: Male

DRUGS (1)
  1. FINERENONE [Suspect]
     Active Substance: FINERENONE
     Dosage: 10 MG, UNK

REACTIONS (2)
  - Blood potassium increased [None]
  - Urine albumin/creatinine ratio decreased [None]

NARRATIVE: CASE EVENT DATE: 20240101
